FAERS Safety Report 19669831 (Version 1)
Quarter: 2021Q3

REPORT INFORMATION
  Report Type: Spontaneous
  Country: CN (occurrence: CN)
  Receive Date: 20210806
  Receipt Date: 20210806
  Transmission Date: 20211014
  Serious: Yes (Other)
  Sender: FDA-Public Use
  Company Number: CN-ASTRAZENECA-2021A660319

PATIENT
  Age: 89 Year
  Sex: Male
  Weight: 60 kg

DRUGS (2)
  1. BRICANYL [Suspect]
     Active Substance: TERBUTALINE SULFATE
     Indication: PNEUMONIA
     Route: 055
     Dates: start: 20210606, end: 20210617
  2. BUDESONIDE. [Suspect]
     Active Substance: BUDESONIDE
     Indication: PNEUMONIA
     Route: 055
     Dates: start: 20210606, end: 20210617

REACTIONS (2)
  - Chest discomfort [Recovering/Resolving]
  - Asphyxia [Recovering/Resolving]

NARRATIVE: CASE EVENT DATE: 20210617
